FAERS Safety Report 7947149-4 (Version None)
Quarter: 2011Q4

REPORT INFORMATION
  Report Type: 
  Country: None (occurrence: None)
  Receive Date: 20111129
  Receipt Date: 20111116
  Transmission Date: 20120403
  Serious: Yes (Hospitalization, Other)
  Sender: FDA-Public Use
  Company Number: US-RB-033793-11

PATIENT
  Sex: Female

DRUGS (2)
  1. SUBUTEX [Suspect]
     Indication: DRUG DEPENDENCE
     Route: 064
     Dates: start: 20110330, end: 20110823
  2. SUBOXONE [Suspect]
     Indication: DRUG DEPENDENCE
     Route: 064
     Dates: start: 20101203, end: 20110329

REACTIONS (3)
  - DRUG WITHDRAWAL SYNDROME NEONATAL [None]
  - TACHYCARDIA [None]
  - FOETAL EXPOSURE DURING PREGNANCY [None]
